FAERS Safety Report 23751814 (Version 1)
Quarter: 2024Q2

REPORT INFORMATION
  Report Type: Spontaneous
  Country: US (occurrence: US)
  Receive Date: 20240417
  Receipt Date: 20240417
  Transmission Date: 20240715
  Serious: Yes (Hospitalization, Other)
  Sender: FDA-Public Use
  Company Number: US-SA-SAC20240412000461

PATIENT
  Age: 62 Year
  Sex: Female
  Weight: 72.6 kg

DRUGS (3)
  1. DUPIXENT [Suspect]
     Active Substance: DUPILUMAB
     Dosage: UNK
     Route: 065
  2. LIDOCAINE [Concomitant]
     Active Substance: LIDOCAINE
  3. CEPHALEXIN [Concomitant]
     Active Substance: CEPHALEXIN
     Dosage: FOUR(4) TIMES DAILY FOR 5 DAYS
     Route: 048
     Dates: start: 20230319

REACTIONS (9)
  - Gastrointestinal obstruction [Unknown]
  - Granuloma [Unknown]
  - Arteriosclerosis [Unknown]
  - Diverticulum [Unknown]
  - Splenic calcification [Unknown]
  - Hepatic calcification [Unknown]
  - Foreign body in skin or subcutaneous tissue [Unknown]
  - Illness [Unknown]
  - Hypertension [Unknown]

NARRATIVE: CASE EVENT DATE: 20230319
